FAERS Safety Report 11397152 (Version 1)
Quarter: 2015Q3

REPORT INFORMATION
  Report Type: Spontaneous
  Country: US (occurrence: US)
  Receive Date: 20150819
  Receipt Date: 20150819
  Transmission Date: 20151125
  Serious: Yes (Hospitalization)
  Sender: FDA-Public Use
  Company Number: US-APOTEX-2015AP011488

PATIENT
  Age: 19 Year
  Sex: Female

DRUGS (6)
  1. GABAPENTIN. [Concomitant]
     Active Substance: GABAPENTIN
     Indication: IRRITABILITY
  2. TOPIRAMATE. [Suspect]
     Active Substance: TOPIRAMATE
     Indication: IRRITABILITY
  3. GABAPENTIN. [Concomitant]
     Active Substance: GABAPENTIN
     Indication: AGITATION
     Dosage: 800 MG, TID
     Route: 065
  4. VALPROIC ACID ORAL SOLUTION USP [Suspect]
     Active Substance: VALPROIC ACID
     Indication: AGGRESSION
  5. TOPIRAMATE. [Suspect]
     Active Substance: TOPIRAMATE
     Indication: AGITATION
     Dosage: 100MG Q.AM, 200MG Q.PM
     Route: 065
  6. VALPROIC ACID ORAL SOLUTION USP [Suspect]
     Active Substance: VALPROIC ACID
     Indication: IRRITABILITY
     Dosage: 500MG Q.AM, 750MG Q.HS
     Route: 065

REACTIONS (2)
  - Hyperammonaemia [Recovered/Resolved]
  - Condition aggravated [Unknown]
